FAERS Safety Report 20096271 (Version 1)
Quarter: 2021Q4

REPORT INFORMATION
  Report Type: Spontaneous
  Country: US (occurrence: None)
  Receive Date: 20211119
  Receipt Date: 20211119
  Transmission Date: 20220303
  Serious: No
  Sender: FDA-Public Use
  Company Number: None

PATIENT
  Age: 28 Year
  Sex: Female
  Weight: 67.05 kg

DRUGS (2)
  1. ASCOR [Suspect]
     Active Substance: ASCORBIC ACID
     Dosage: FREQUENCY : WEEKLY;?
     Route: 041
     Dates: start: 20170504
  2. PYRIDOXINE [Concomitant]
     Active Substance: PYRIDOXINE
     Dates: start: 20170713

REACTIONS (3)
  - Eye swelling [None]
  - Ocular hyperaemia [None]
  - Eye pruritus [None]

NARRATIVE: CASE EVENT DATE: 20211119
